FAERS Safety Report 24910125 (Version 1)
Quarter: 2025Q1

REPORT INFORMATION
  Report Type: Report from Study
  Country: US (occurrence: US)
  Receive Date: 20250131
  Receipt Date: 20250131
  Transmission Date: 20250409
  Serious: Yes (Life-Threatening, Hospitalization, Other)
  Sender: ALEXION PHARMACEUTICALS
  Company Number: US-AstraZeneca-CH-00795318A

PATIENT
  Age: 74 Year

DRUGS (1)
  1. TICAGRELOR [Suspect]
     Active Substance: TICAGRELOR
     Route: 065

REACTIONS (8)
  - Cardiac arrest [Unknown]
  - Upper limb fracture [Unknown]
  - Craniofacial fracture [Unknown]
  - Syncope [Unknown]
  - Fall [Unknown]
  - Rib fracture [Unknown]
  - Blindness [Unknown]
  - Cataract [Unknown]
